FAERS Safety Report 8975185 (Version 1)
Quarter: 2012Q4

REPORT INFORMATION
  Report Type: 
  Country: US (occurrence: US)
  Receive Date: 20121220
  Receipt Date: 20121220
  Transmission Date: 20130627
  Serious: Yes (Other)
  Sender: FDA-Public Use
  Company Number: PHEH2012US024974

PATIENT

DRUGS (10)
  1. DIOVAN [Suspect]
     Dosage: 80 mg, UNK
  2. DIOVAN [Suspect]
     Dosage: 160 mg, QD
     Route: 048
  3. CYMBALTA [Concomitant]
     Dosage: UNK UKN, UNK
  4. VITAMIN D [Concomitant]
     Dosage: UNK UKN, UNK
  5. XANAX [Concomitant]
     Dosage: UNK UKN, QD
  6. BACLOFEN [Concomitant]
     Dosage: UNK UKN, UNK
  7. OXYCODONE [Concomitant]
     Dosage: UNK UKN, UNK
  8. BONIVA [Concomitant]
     Indication: OSTEOPOROSIS
     Dosage: UNK UKN, UNK
  9. ANDROGEL [Concomitant]
     Indication: BLOOD TESTOSTERONE
     Dosage: UNK UKN, UNK
  10. SUPER-K [Concomitant]
     Dosage: UNK UKN, UNK

REACTIONS (1)
  - Back disorder [Unknown]
